FAERS Safety Report 16430010 (Version 1)
Quarter: 2019Q2

REPORT INFORMATION
  Report Type: Spontaneous
  Country: JP (occurrence: JP)
  Receive Date: 20190614
  Receipt Date: 20190614
  Transmission Date: 20190711
  Serious: Yes (Other)
  Sender: FDA-Public Use
  Company Number: JP-PFIZER INC-2019241764

PATIENT
  Age: 82 Year
  Sex: Female

DRUGS (6)
  1. SELARA [Suspect]
     Active Substance: EPLERENONE
     Indication: HYPERTENSION
     Dosage: UNK
     Route: 048
     Dates: end: 201906
  2. E KEPPRA [Concomitant]
     Active Substance: LEVETIRACETAM
     Dosage: UNK
  3. RYTHMODAN [DISOPYRAMIDE PHOSPHATE] [Concomitant]
     Dosage: UNK
  4. ALESION [Concomitant]
     Active Substance: EPINASTINE HYDROCHLORIDE
     Dosage: UNK
  5. LIPITOR ORIFARM [Concomitant]
     Active Substance: ATORVASTATIN CALCIUM
     Dosage: UNK
  6. AZILVA [Concomitant]
     Active Substance: AZILSARTAN KAMEDOXOMIL
     Dosage: UNK

REACTIONS (1)
  - Hypokalaemia [Unknown]

NARRATIVE: CASE EVENT DATE: 20190605
